FAERS Safety Report 25993443 (Version 1)
Quarter: 2025Q4

REPORT INFORMATION
  Report Type: Spontaneous
  Country: EU (occurrence: EU)
  Receive Date: 20251104
  Receipt Date: 20251104
  Transmission Date: 20260118
  Serious: Yes (Death, Hospitalization, Other)
  Sender: CHEPLAPHARM
  Company Number: None

PATIENT
  Age: 69 Year
  Sex: Female

DRUGS (8)
  1. CAPECITABINE [Suspect]
     Active Substance: CAPECITABINE
     Indication: Product used for unknown indication
     Dosage: UNK
     Dates: start: 202410
  2. PACLITAXEL [Suspect]
     Active Substance: PACLITAXEL
     Indication: Adjuvant therapy
     Dosage: 12 CYCLES
  3. FULVESTRANT [Suspect]
     Active Substance: FULVESTRANT
     Indication: Metastases to bone
     Dosage: UNK
  4. ABEMACICLIB [Suspect]
     Active Substance: ABEMACICLIB
     Indication: Metastases to bone
     Dosage: UNK
  5. PALBOCICLIB [Suspect]
     Active Substance: PALBOCICLIB
     Indication: Metastases to bone
     Dosage: UNK
  6. ERIBULIN [Suspect]
     Active Substance: ERIBULIN
     Indication: Product used for unknown indication
     Dosage: UNK
     Dates: start: 202411, end: 202503
  7. ERIBULIN [Suspect]
     Active Substance: ERIBULIN
     Indication: Product used for unknown indication
     Dosage: UNK
     Dates: start: 202508
  8. DEXAMETHASONE [Suspect]
     Active Substance: DEXAMETHASONE
     Indication: Product used for unknown indication
     Dosage: UNK

REACTIONS (18)
  - Metastases to bone [Fatal]
  - Pneumocystis jirovecii pneumonia [Unknown]
  - Mania [Unknown]
  - Aggression [Unknown]
  - Gastrointestinal toxicity [Unknown]
  - Neutropenia [Unknown]
  - Pneumonitis [Unknown]
  - Angina pectoris [Unknown]
  - Metastases to central nervous system [Unknown]
  - Generalised tonic-clonic seizure [Unknown]
  - Metastases to liver [Unknown]
  - Hemiparesis [Unknown]
  - Transaminases increased [Unknown]
  - Metastases to lung [Unknown]
  - Stomatitis [Unknown]
  - Pseudocirrhosis [Unknown]
  - Drug intolerance [Unknown]
  - Hepatic steatosis [Unknown]

NARRATIVE: CASE EVENT DATE: 20220101
